FAERS Safety Report 20746978 (Version 1)
Quarter: 2022Q2

REPORT INFORMATION
  Report Type: Spontaneous
  Country: US (occurrence: US)
  Receive Date: 20220425
  Receipt Date: 20220425
  Transmission Date: 20220720
  Serious: Yes (Hospitalization)
  Sender: FDA-Public Use
  Company Number: US-TEVA-2022-US-2030941

PATIENT
  Age: 30 Year
  Sex: Female

DRUGS (6)
  1. RIZATRIPTAN [Suspect]
     Active Substance: RIZATRIPTAN
     Indication: Migraine
     Route: 065
  2. MECLIZINE [Suspect]
     Active Substance: MECLIZINE HYDROCHLORIDE
     Indication: Migraine
     Route: 065
  3. KEVEYIS [Suspect]
     Active Substance: DICHLORPHENAMIDE
     Route: 065
  4. UBRELVY [Suspect]
     Active Substance: UBROGEPANT
     Indication: Migraine
     Route: 065
  5. ZOLMITRIPTAN [Suspect]
     Active Substance: ZOLMITRIPTAN
     Indication: Migraine
     Route: 065
  6. BUTALBITAL [Suspect]
     Active Substance: BUTALBITAL
     Indication: Migraine
     Route: 065

REACTIONS (1)
  - Paralysis [Not Recovered/Not Resolved]
